FAERS Safety Report 17326641 (Version 1)
Quarter: 2020Q1

REPORT INFORMATION
  Report Type: Report from Study
  Country: DE (occurrence: DE)
  Receive Date: 20200127
  Receipt Date: 20200127
  Transmission Date: 20200409
  Serious: Yes (Hospitalization)
  Sender: FDA-Public Use
  Company Number: DE-PFIZER INC-2020032034

PATIENT
  Age: 53 Year
  Sex: Male

DRUGS (3)
  1. LEFLUNOMID [Suspect]
     Active Substance: LEFLUNOMIDE
     Dosage: 10 MG, DAILY
  2. METHOTREXATE SODIUM. [Suspect]
     Active Substance: METHOTREXATE SODIUM
     Dosage: 7.5 MG, WEEKLY
  3. NO SUBJECT DRUG [Suspect]
     Active Substance: UNSPECIFIED INGREDIENT
     Dosage: NO DOSE GIVEN

REACTIONS (2)
  - Shock haemorrhagic [Recovered/Resolved]
  - Duodenal ulcer perforation [Recovered/Resolved]

NARRATIVE: CASE EVENT DATE: 20191201
